FAERS Safety Report 13335312 (Version 2)
Quarter: 2017Q2

REPORT INFORMATION
  Report Type: Spontaneous
  Country: US (occurrence: US)
  Receive Date: 20170314
  Receipt Date: 20170619
  Transmission Date: 20170830
  Serious: No
  Sender: FDA-Public Use
  Company Number: US-PFIZER INC-2017106669

PATIENT
  Age: 74 Year
  Sex: Female

DRUGS (1)
  1. NEURONTIN [Suspect]
     Active Substance: GABAPENTIN
     Indication: NERVE INJURY
     Dosage: UNK, 2X/DAY (100 ?)

REACTIONS (3)
  - Product use in unapproved indication [Unknown]
  - Head discomfort [Recovered/Resolved]
  - Feeling abnormal [Recovered/Resolved]
